FAERS Safety Report 6092580-8 (Version None)
Quarter: 2009Q1

REPORT INFORMATION
  Report Type: 
  Country: None (occurrence: None)
  Receive Date: 20090225
  Receipt Date: 20080119
  Transmission Date: 20090719
  Serious: No
  Sender: FDA-Public Use
  Company Number: US-BRISTOL-MYERS SQUIBB COMPANY-14063788

PATIENT

DRUGS (1)
  1. KENALOG [Suspect]

REACTIONS (2)
  - DRUG ADMINISTRATION ERROR [None]
  - SKIN DISCOLOURATION [None]
